FAERS Safety Report 13123079 (Version 3)
Quarter: 2017Q1

REPORT INFORMATION
  Report Type: Spontaneous
  Country: US (occurrence: US)
  Receive Date: 20170117
  Receipt Date: 20170307
  Transmission Date: 20170428
  Serious: Yes (Hospitalization, Other)
  Sender: FDA-Public Use
  Company Number: US-ALLERGAN-1701398US

PATIENT
  Age: 66 Year
  Sex: Male
  Weight: 95.69 kg

DRUGS (13)
  1. ASPIRIN. [Concomitant]
     Active Substance: ASPIRIN
     Indication: PRODUCT USED FOR UNKNOWN INDICATION
     Dosage: 81 MG, UNK
     Route: 048
  2. GLUCOSAMINE + CHONDROITIN [Concomitant]
     Indication: MUSCULOSKELETAL DISCOMFORT
     Dosage: UNK
     Route: 048
  3. BRIMONIDINE TARTRATE. [Concomitant]
     Active Substance: BRIMONIDINE TARTRATE
     Indication: GLAUCOMA
     Dosage: UNK
     Route: 047
  4. SIMVASTATIN. [Concomitant]
     Active Substance: SIMVASTATIN
     Indication: PRODUCT USED FOR UNKNOWN INDICATION
     Dosage: UNK
     Route: 048
  5. PLAVIX [Concomitant]
     Active Substance: CLOPIDOGREL BISULFATE
     Indication: PRODUCT USED FOR UNKNOWN INDICATION
     Dosage: UNK
     Route: 048
     Dates: start: 2006
  6. TIMOLOL MALEATE. [Concomitant]
     Active Substance: TIMOLOL MALEATE
     Indication: GLAUCOMA
     Dosage: UNK
     Route: 047
  7. LISINOPRIL. [Concomitant]
     Active Substance: LISINOPRIL
     Indication: HYPERTENSION
     Dosage: UNK
     Route: 048
  8. PRED FORTE [Suspect]
     Active Substance: PREDNISOLONE ACETATE
     Dosage: 2 GTT, UNK
     Route: 047
     Dates: start: 201701
  9. PRED FORTE [Suspect]
     Active Substance: PREDNISOLONE ACETATE
     Indication: UVEITIS
     Dosage: 2 GTT, BID
     Route: 047
     Dates: start: 1983, end: 201612
  10. METOPROLOL. [Concomitant]
     Active Substance: METOPROLOL
     Indication: HYPERTENSION
     Dosage: UNK
     Route: 048
  11. COREG [Concomitant]
     Active Substance: CARVEDILOL
     Indication: HYPERTENSION
     Dosage: UNK
     Route: 048
     Dates: start: 2006
  12. VITAMIN B12 [Concomitant]
     Active Substance: CYANOCOBALAMIN
     Indication: PRODUCT USED FOR UNKNOWN INDICATION
     Dosage: UNK
     Route: 048
  13. PRED FORTE [Suspect]
     Active Substance: PREDNISOLONE ACETATE
     Dosage: 2 GTT, UNK
     Route: 047
     Dates: start: 201612, end: 201701

REACTIONS (17)
  - Off label use [Unknown]
  - Rotator cuff syndrome [Recovered/Resolved]
  - Limb operation [Recovered/Resolved]
  - Uveitis [Recovered/Resolved]
  - Blood urine present [Recovered/Resolved]
  - Amnesia [Unknown]
  - Osteoarthritis [Recovered/Resolved]
  - Glaucoma [Not Recovered/Not Resolved]
  - Retinal detachment [Recovered/Resolved]
  - Hernia repair [Recovered/Resolved]
  - Eye disorder [Recovered/Resolved]
  - Prostate cancer [Recovered/Resolved]
  - Nephrolithiasis [Recovered/Resolved]
  - Synovial cyst [Recovered/Resolved]
  - Myocardial infarction [Recovered/Resolved]
  - Cataract [Recovered/Resolved]
  - Type 2 diabetes mellitus [Not Recovered/Not Resolved]

NARRATIVE: CASE EVENT DATE: 1987
